FAERS Safety Report 14139716 (Version 2)
Quarter: 2017Q4

REPORT INFORMATION
  Report Type: Spontaneous
  Country: US (occurrence: US)
  Receive Date: 20171029
  Receipt Date: 20171113
  Transmission Date: 20180321
  Serious: Yes (Hospitalization)
  Sender: FDA-Public Use
  Company Number: US-PIRAMAL CRITICAL CARE LIMITED-2017-PEL-003226

PATIENT

DRUGS (2)
  1. GABLOFEN [Suspect]
     Active Substance: BACLOFEN
     Indication: MULTIPLE SCLEROSIS
     Dosage: 12 ?G, QD
     Route: 037
  2. GABLOFEN [Suspect]
     Active Substance: BACLOFEN
     Indication: MUSCLE SPASTICITY
     Dosage: 651 ?G, QD
     Route: 037

REACTIONS (5)
  - Blood pressure decreased [Unknown]
  - Eye movement disorder [Unknown]
  - Condition aggravated [Unknown]
  - Hallucination [Unknown]
  - Device battery issue [Unknown]

NARRATIVE: CASE EVENT DATE: 20171010
